FAERS Safety Report 4654143-8 (Version None)
Quarter: 2005Q2

REPORT INFORMATION
  Report Type: 
  Country: None (occurrence: None)
  Receive Date: 20050504
  Receipt Date: 20050428
  Transmission Date: 20051028
  Serious: Yes (Death)
  Sender: FDA-Public Use
  Company Number: TAP2005Q00713

PATIENT
  Age: 44 Year
  Sex: Female

DRUGS (3)
  1. LUPRON DEPOT-3 [Suspect]
     Indication: MENORRHAGIA
     Dosage: 3.75 MG, 1 IN 1 M, INTRAMUSCULAR
     Route: 030
     Dates: start: 20050209, end: 20050407
  2. LUPRON DEPOT-3 [Suspect]
     Indication: UTERINE LEIOMYOMA
     Dosage: 3.75 MG, 1 IN 1 M, INTRAMUSCULAR
     Route: 030
     Dates: start: 20050209, end: 20050407
  3. COUMADIN [Concomitant]

REACTIONS (1)
  - CAROTID ARTERY ANEURYSM [None]
